FAERS Safety Report 17762640 (Version 2)
Quarter: 2020Q3

REPORT INFORMATION
  Report Type: Report from Study
  Country: US (occurrence: US)
  Receive Date: 20200508
  Receipt Date: 20200701
  Transmission Date: 20201102
  Serious: Yes (Other)
  Sender: FDA-Public Use
  Company Number: US-BRISTOL-MYERS SQUIBB COMPANY-BMS-2020-035462

PATIENT
  Age: 42 Year
  Sex: Female

DRUGS (2)
  1. YERVOY [Suspect]
     Active Substance: IPILIMUMAB
     Indication: MALIGNANT MELANOMA
     Dosage: EVERY OTHER WEEK
     Route: 042
     Dates: start: 2018
  2. NIVOLUMAB [Suspect]
     Active Substance: NIVOLUMAB
     Indication: MALIGNANT MELANOMA
     Dosage: EVERY OTHER WEEK
     Route: 042
     Dates: start: 2018

REACTIONS (7)
  - Vomiting [Recovered/Resolved]
  - Off label use [Unknown]
  - Haemoglobin decreased [Unknown]
  - Thyroid disorder [Unknown]
  - Brain oedema [Unknown]
  - Noninfective encephalitis [Unknown]
  - Skin irritation [Unknown]
